FAERS Safety Report 6365319 (Version 4)
Quarter: 2020Q3

REPORT INFORMATION
  Report Type: Report from Study
  Country: US (occurrence: US)
  Receive Date: 20070724
  Receipt Date: 20071121
  Transmission Date: 20201105
  Serious: Yes (Disabling)
  Sender: FDA-Public Use
  Company Number: US-JNJFOC-20070703008

PATIENT
  Age: 2 Year
  Sex: Male
  Weight: 11.7 kg

DRUGS (11)
  1. MELATONIN [Concomitant]
     Active Substance: MELATONIN
     Route: 048
  2. TOPAMAX [Suspect]
     Active Substance: TOPIRAMATE
     Route: 048
  3. TOPAMAX [Suspect]
     Active Substance: TOPIRAMATE
     Route: 048
  4. TOPAMAX [Suspect]
     Active Substance: TOPIRAMATE
     Route: 048
  5. TOPAMAX [Suspect]
     Active Substance: TOPIRAMATE
     Route: 048
  6. TOPAMAX [Suspect]
     Active Substance: TOPIRAMATE
     Dosage: 1 DOSE IN THE AM AND 2 DOSES IN THE PM
     Route: 048
  7. TOPAMAX [Suspect]
     Active Substance: TOPIRAMATE
     Route: 048
  8. TOPAMAX [Suspect]
     Active Substance: TOPIRAMATE
     Dosage: 75 MG IN AM, 100 MG IN PM
     Route: 048
  9. TOPAMAX [Suspect]
     Active Substance: TOPIRAMATE
     Indication: PARTIAL SEIZURES
     Route: 048
  10. TOPAMAX [Suspect]
     Active Substance: TOPIRAMATE
     Route: 048
  11. TOPAMAX [Suspect]
     Active Substance: TOPIRAMATE
     Dosage: 2 DOSES IN THE AM AND 3 DOSES IN THE PM
     Route: 048

REACTIONS (1)
  - Autism spectrum disorder [Not Recovered/Not Resolved]

NARRATIVE: CASE EVENT DATE: 20070711
